FAERS Safety Report 12694918 (Version 3)
Quarter: 2016Q4

REPORT INFORMATION
  Report Type: Spontaneous
  Country: US (occurrence: US)
  Receive Date: 20160829
  Receipt Date: 20161031
  Transmission Date: 20170207
  Serious: Yes (Death, Hospitalization, Other)
  Sender: FDA-Public Use
  Company Number: US-PFIZER INC-2015288735

PATIENT
  Age: 58 Year
  Sex: Male
  Weight: 77.98 kg

DRUGS (5)
  1. REVATIO [Suspect]
     Active Substance: SILDENAFIL CITRATE
     Indication: RESPIRATORY DISORDER
     Dosage: 20 MG, DAILY
     Dates: start: 2012
  2. LACTULOSE. [Concomitant]
     Active Substance: LACTULOSE
     Indication: AMMONIA INCREASED
     Dosage: UNK, DAILY [(TOOK A MOUTHFUL, UNMEASURED, A TABLE SPOON A DAY)]
     Route: 048
     Dates: start: 2012, end: 20160723
  3. REVATIO [Suspect]
     Active Substance: SILDENAFIL CITRATE
     Indication: RIGHT VENTRICULAR SYSTOLIC PRESSURE INCREASED
     Dosage: 20 MG, 1X/DAY
     Route: 048
     Dates: start: 2013, end: 201607
  4. LASIX [Concomitant]
     Active Substance: FUROSEMIDE
     Indication: HEPATIC FAILURE
     Dosage: UNK
     Dates: start: 201605
  5. REVATIO [Suspect]
     Active Substance: SILDENAFIL CITRATE
     Indication: LIVER TRANSPLANT

REACTIONS (12)
  - Hepatic cancer [Fatal]
  - Ammonia increased [Unknown]
  - Therapeutic response unexpected [Unknown]
  - Product use issue [Unknown]
  - Hepatitis C [Fatal]
  - Intra-abdominal fluid collection [Unknown]
  - Hepatic failure [Fatal]
  - Coma [Fatal]
  - Intentional product use issue [Unknown]
  - Condition aggravated [Fatal]
  - Cirrhosis alcoholic [Fatal]
  - Renal failure [Fatal]

NARRATIVE: CASE EVENT DATE: 2012
